FAERS Safety Report 21583816 (Version 5)
Quarter: 2023Q1

REPORT INFORMATION
  Report Type: Spontaneous
  Country: CA (occurrence: CA)
  Receive Date: 20221111
  Receipt Date: 20230227
  Transmission Date: 20230418
  Serious: Yes (Hospitalization)
  Sender: FDA-Public Use
  Company Number: CA-PFIZER INC-202200845628

PATIENT
  Age: 60 Year
  Sex: Female

DRUGS (4)
  1. ABRILADA [Suspect]
     Active Substance: ADALIMUMAB-AFZB
     Indication: Hidradenitis
     Dosage: 160 MG AT WK 0, 80 MG AT WK 2, THEN 40MG EVERY 2 WKS BEGINNING AT WK 4PREFILLED PEN
     Route: 058
     Dates: start: 20220426, end: 2022
  2. ABRILADA [Suspect]
     Active Substance: ADALIMUMAB-AFZB
     Dosage: 160 MG AT WEEK 0, 80 MG AT WEEK 2, THEN 40MG EVERY 2 WEEK BEGINNING AT WEEK 4
     Route: 058
     Dates: start: 20220426, end: 2022
  3. ABRILADA [Suspect]
     Active Substance: ADALIMUMAB-AFZB
     Dosage: 160 MG AT WEEK 0, 80 MG AT WEEK 2, THEN 40MG EVERY 2 WEEK BEGINNING AT WEEK 4
     Route: 058
     Dates: start: 20220510
  4. ABRILADA [Suspect]
     Active Substance: ADALIMUMAB-AFZB
     Dosage: 80 MG, WEEKLY PREFILLED PEN
     Route: 058
     Dates: start: 2022

REACTIONS (5)
  - Procedural complication [Not Recovered/Not Resolved]
  - Drug ineffective [Unknown]
  - Therapeutic product effect incomplete [Unknown]
  - Off label use [Unknown]
  - Off label use [Unknown]

NARRATIVE: CASE EVENT DATE: 20220101
